FAERS Safety Report 6664379-2 (Version None)
Quarter: 2010Q2

REPORT INFORMATION
  Report Type: 
  Country: None (occurrence: None)
  Receive Date: 20100401
  Receipt Date: 20100326
  Transmission Date: 20101027
  Serious: Yes (Hospitalization, Other)
  Sender: FDA-Public Use
  Company Number: GXKR2010ES03597

PATIENT
  Age: 41 Year
  Sex: Male

DRUGS (1)
  1. LORAZEPAM (NGX) [Suspect]

REACTIONS (6)
  - BLISTER [None]
  - COMA [None]
  - DISORIENTATION [None]
  - HYPERHIDROSIS [None]
  - INTENTIONAL OVERDOSE [None]
  - TACHYCARDIA [None]
